FAERS Safety Report 5863797-X (Version None)
Quarter: 2008Q3

REPORT INFORMATION
  Report Type: 
  Country: None (occurrence: None)
  Receive Date: 20080827
  Receipt Date: 20080820
  Transmission Date: 20090109
  Serious: Yes (Life-Threatening, Hospitalization, Other)
  Sender: FDA-Public Use
  Company Number: ADE2008-0273

PATIENT
  Age: 29 Year
  Sex: Male

DRUGS (7)
  1. METOPROLOL SUCCINATE [Suspect]
     Indication: HYPERTENSION
     Dosage: 8MG - ONCE - IV
     Route: 042
  2. EPINEPHRINE [Suspect]
     Indication: SURGERY
     Dosage: PRN - TOPICAL/IV
     Route: 061
  3. PROPOFOL 200MG [Concomitant]
  4. FENTANYL 50 MICROGAMS [Concomitant]
  5. SEVOFLURANE INHALATION [Concomitant]
  6. LIDOCAINE 1:1000 [Concomitant]
  7. LIDOCAINE 1% +1:2000  EPINEPHRINE [Concomitant]

REACTIONS (22)
  - AGITATION [None]
  - ANOXIC ENCEPHALOPATHY [None]
  - APPARENT DEATH [None]
  - BRADYCARDIA [None]
  - CARDIAC ARREST [None]
  - CARDIOGENIC SHOCK [None]
  - CREPITATIONS [None]
  - DRUG INTERACTION [None]
  - EJECTION FRACTION DECREASED [None]
  - ELECTROCARDIOGRAM QRS COMPLEX PROLONGED [None]
  - ELECTROCARDIOGRAM ST SEGMENT ELEVATION [None]
  - ELECTROMECHANICAL DISSOCIATION [None]
  - EXTRASYSTOLES [None]
  - HAEMODYNAMIC INSTABILITY [None]
  - LEFT VENTRICULAR DYSFUNCTION [None]
  - OXYGEN SATURATION DECREASED [None]
  - PULMONARY OEDEMA [None]
  - RESPIRATORY DISTRESS [None]
  - RESPIRATORY RATE INCREASED [None]
  - SINUS TACHYCARDIA [None]
  - TACHYCARDIA [None]
  - VENTRICULAR EXTRASYSTOLES [None]
